FAERS Safety Report 6045361-5 (Version None)
Quarter: 2009Q1

REPORT INFORMATION
  Report Type: 
  Country: None (occurrence: None)
  Receive Date: 20090121
  Receipt Date: 20090114
  Transmission Date: 20090719
  Serious: Yes (Other)
  Sender: FDA-Public Use
  Company Number: AU-AVENTIS-200910558GDDC

PATIENT
  Age: 61 Year
  Sex: Female

DRUGS (5)
  1. ARAVA [Suspect]
     Indication: RHEUMATOID ARTHRITIS
     Route: 048
     Dates: start: 20050420
  2. PLAQUENIL                          /00072601/ [Concomitant]
     Indication: RHEUMATOID ARTHRITIS
     Dosage: DOSE: UNK
  3. METHOTREXATE [Concomitant]
     Indication: RHEUMATOID ARTHRITIS
     Dosage: DOSE: UNK
  4. MOBIC [Concomitant]
     Indication: RHEUMATOID ARTHRITIS
     Dosage: DOSE: UNK
  5. LEVOTHYROXINE SODIUM [Concomitant]
     Dosage: DOSE: UNK

REACTIONS (2)
  - PORPHYRIA [None]
  - SYSTEMIC LUPUS ERYTHEMATOSUS [None]
